FAERS Safety Report 9458925 (Version 2)
Quarter: 2013Q3

REPORT INFORMATION
  Report Type: Spontaneous
  Country: DK (occurrence: JP)
  Receive Date: 20130814
  Receipt Date: 20130917
  Transmission Date: 20140515
  Serious: Yes (Hospitalization)
  Sender: FDA-Public Use
  Company Number: JP-FRI-1000047739

PATIENT
  Age: 46 Year
  Sex: Male

DRUGS (2)
  1. LEXAPRO [Suspect]
     Indication: DEPRESSION
     Dosage: 10 MG
     Route: 048
     Dates: start: 20130125, end: 20130131
  2. FLUNITRAZEPAM [Concomitant]
     Indication: DEPRESSION
     Dosage: 1 MG
     Route: 048
     Dates: start: 20130125

REACTIONS (5)
  - Activation syndrome [Recovered/Resolved]
  - Disturbance in attention [Unknown]
  - Headache [Unknown]
  - Tension [Unknown]
  - Hyperhidrosis [Unknown]
